FAERS Safety Report 23160197 (Version 3)
Quarter: 2024Q1

REPORT INFORMATION
  Report Type: Spontaneous
  Country: US (occurrence: US)
  Receive Date: 20231108
  Receipt Date: 20240216
  Transmission Date: 20240409
  Serious: Yes (Hospitalization, Other)
  Sender: FDA-Public Use
  Company Number: US-SA-SAC20231106000891

PATIENT
  Age: 44 Year
  Sex: Female
  Weight: 104.3 kg

DRUGS (2)
  1. DUPIXENT [Suspect]
     Active Substance: DUPILUMAB
     Indication: Asthma
     Dosage: 300 MG, QOW
     Route: 058
     Dates: start: 202011
  2. DUPIXENT [Suspect]
     Active Substance: DUPILUMAB
     Indication: Seasonal allergy

REACTIONS (19)
  - Pneumonia staphylococcal [Unknown]
  - Oxygen saturation decreased [Unknown]
  - Tachycardia [Unknown]
  - Cyanosis [Unknown]
  - Pneumothorax [Unknown]
  - Chest pain [Unknown]
  - Ankylosing spondylitis [Not Recovered/Not Resolved]
  - Nephrolithiasis [Recovered/Resolved]
  - Asthma [Not Recovered/Not Resolved]
  - Knee arthroplasty [Unknown]
  - COVID-19 [Unknown]
  - Cough [Not Recovered/Not Resolved]
  - Sputum discoloured [Not Recovered/Not Resolved]
  - Peak expiratory flow rate decreased [Not Recovered/Not Resolved]
  - Urinary tract infection [Recovered/Resolved]
  - Malaise [Not Recovered/Not Resolved]
  - Eosinophil count increased [Recovered/Resolved]
  - Drug ineffective [Unknown]
  - Product use in unapproved indication [Unknown]

NARRATIVE: CASE EVENT DATE: 20220101
